FAERS Safety Report 6964384-2 (Version None)
Quarter: 2010Q3

REPORT INFORMATION
  Report Type: 
  Country: None (occurrence: None)
  Receive Date: 20100903
  Receipt Date: 20100820
  Transmission Date: 20110219
  Serious: Yes (Other)
  Sender: FDA-Public Use
  Company Number: GB-RANBAXY-2010RR-36444

PATIENT
  Age: 62 Year
  Sex: Female

DRUGS (5)
  1. DOXYCYCLINE TABLETS [Suspect]
  2. METHOTREXATE [Suspect]
     Indication: CENTRAL NERVOUS SYSTEM LYMPHOMA
  3. CYTARABINE [Suspect]
     Indication: CENTRAL NERVOUS SYSTEM LYMPHOMA
  4. FUSIDIC ACID [Concomitant]
  5. VANCOMYCIN [Concomitant]

REACTIONS (2)
  - KORSAKOFF'S PSYCHOSIS NON-ALCOHOLIC [None]
  - WERNICKE'S ENCEPHALOPATHY [None]
